FAERS Safety Report 15864531 (Version 1)
Quarter: 2019Q1

REPORT INFORMATION
  Report Type: Spontaneous
  Country: DE (occurrence: DE)
  Receive Date: 20190124
  Receipt Date: 20190124
  Transmission Date: 20190417
  Serious: Yes (Hospitalization, Other)
  Sender: FDA-Public Use
  Company Number: DE-ELI_LILLY_AND_COMPANY-DE201901007438

PATIENT
  Age: 66 Year
  Sex: Female

DRUGS (5)
  1. KEYTRUDA [Suspect]
     Active Substance: PEMBROLIZUMAB
     Dosage: 200 MG, UNKNOWN
     Route: 065
     Dates: start: 20180928, end: 201811
  2. KEYTRUDA [Suspect]
     Active Substance: PEMBROLIZUMAB
     Indication: NON-SMALL CELL LUNG CANCER
     Dosage: 200 MG, UNKNOWN
     Route: 065
     Dates: start: 20161026, end: 201811
  3. PEMETREXED. [Suspect]
     Active Substance: PEMETREXED
     Dosage: 500 MG/M2, UNKNOWN
     Route: 065
     Dates: end: 201811
  4. PEMETREXED. [Suspect]
     Active Substance: PEMETREXED
     Indication: NON-SMALL CELL LUNG CANCER
     Dosage: 450 MG/M2, UNKNOWN
     Route: 065
  5. CARBOPLATIN. [Suspect]
     Active Substance: CARBOPLATIN
     Indication: NON-SMALL CELL LUNG CANCER
     Dosage: UNK UNK, UNKNOWN
     Route: 065
     Dates: end: 201811

REACTIONS (10)
  - Deep vein thrombosis [Unknown]
  - Cardiac failure [Recovered/Resolved]
  - Malignant neoplasm progression [Unknown]
  - Off label use [Unknown]
  - Condition aggravated [Unknown]
  - Atrial fibrillation [Recovered/Resolved]
  - Haemoptysis [Unknown]
  - Diarrhoea [Unknown]
  - Hypokalaemia [Unknown]
  - Mucosal inflammation [Unknown]

NARRATIVE: CASE EVENT DATE: 201810
